FAERS Safety Report 17765776 (Version 1)
Quarter: 2020Q2

REPORT INFORMATION
  Report Type: Other
  Country: CN (occurrence: CN)
  Receive Date: 20200511
  Receipt Date: 20200511
  Transmission Date: 20200714
  Serious: Yes (Hospitalization, Other)
  Sender: FDA-Public Use
  Company Number: CN-AJANTA PHARMA USA INC.-2083666

PATIENT
  Age: 56 Year
  Sex: Male

DRUGS (1)
  1. SILDENAFIL (ANDA 206401) [Suspect]
     Active Substance: SILDENAFIL CITRATE

REACTIONS (13)
  - Electrocardiogram ST segment depression [Recovered/Resolved]
  - Chest discomfort [Recovered/Resolved]
  - Hypotension [Recovered/Resolved]
  - Coronary artery stenosis [Recovered/Resolved]
  - Hypertrophic cardiomyopathy [Recovered/Resolved]
  - Hypoxia [Recovered/Resolved]
  - Palpitations [Recovered/Resolved]
  - Electrocardiogram ST segment elevation [Recovered/Resolved]
  - Bundle branch block right [Recovered/Resolved]
  - Atrial fibrillation [Recovered/Resolved]
  - Overdose [Recovered/Resolved]
  - Myocardial fibrosis [Recovered/Resolved]
  - Pulmonary oedema [Recovered/Resolved]
